FAERS Safety Report 7687128-8 (Version None)
Quarter: 2011Q3

REPORT INFORMATION
  Report Type: 
  Country: None (occurrence: None)
  Receive Date: 20110816
  Receipt Date: 20110805
  Transmission Date: 20111222
  Serious: Yes (Other)
  Sender: FDA-Public Use
  Company Number: PHEH2006US10885

PATIENT
  Sex: Female
  Weight: 51.247 kg

DRUGS (61)
  1. AREDIA [Suspect]
     Dates: end: 20030101
  2. DIFLUNISAL [Concomitant]
  3. ZOMETA [Suspect]
  4. PREDNISONE [Concomitant]
  5. CLOBETASOL PROPIONATE [Concomitant]
  6. AVELOX [Concomitant]
  7. PROZAC [Concomitant]
  8. PERIOGARD [Concomitant]
  9. HYDROCORTISONE [Concomitant]
  10. BENADRYL ^ACHE^ [Concomitant]
  11. VINCRISTINE + ADRIAMYCIN + DEXAMETHASONE [Concomitant]
  12. INTERFERON [Concomitant]
  13. PAMIDRONATE DISODIUM [Concomitant]
     Dosage: 90 MG, UNK
  14. BACTRIM [Concomitant]
  15. FERROUS SULFATE TAB [Concomitant]
  16. CELEXA [Concomitant]
  17. IMITREX ^GLAXO^ [Concomitant]
  18. FEOGEN FA [Concomitant]
  19. CHLORHEXIDINE GLUCONATE [Concomitant]
  20. ACTIVELLA [Concomitant]
  21. EFFEXOR XR [Concomitant]
  22. VENLAFAXINE HYDROCHLORIDE [Concomitant]
  23. ACETAMINOPHEN W/ CODEINE [Concomitant]
  24. AXID [Concomitant]
     Dosage: 150 MG, QD
     Route: 048
  25. COMPAZINE [Concomitant]
     Dosage: 10 MG, Q6H, WHEN NEEDED
  26. CALCIUM CARBONATE [Concomitant]
  27. ZITHROMAX [Concomitant]
  28. EVISTA [Concomitant]
  29. NYSTATIN [Concomitant]
  30. ATIVAN [Concomitant]
  31. FAMCICLOVIR [Concomitant]
     Dosage: 500 MG, TID
     Route: 048
  32. MEDROXYPROGESTERONE [Concomitant]
  33. PROVERA [Concomitant]
  34. MESNA [Concomitant]
  35. CIPROFLOXACIN [Concomitant]
  36. FERROUS SULFATE TAB [Concomitant]
  37. NASONEX [Concomitant]
  38. ESTRADIOL AND NORETHINDRONE ACETATE [Concomitant]
  39. POLYETHYLENE GLYCOL [Concomitant]
  40. OXYCODONE HCL AND ACETAMINOPHEN [Concomitant]
  41. CLINDAMYCIN HCL [Concomitant]
  42. AMOXICILLIN [Concomitant]
  43. CITALOPRAM HYDROBROMIDE [Concomitant]
  44. AZITHROMYCIN [Concomitant]
  45. MACROBID [Concomitant]
  46. PERIDEX [Concomitant]
  47. PERCOCET [Concomitant]
  48. HORMONES [Concomitant]
  49. CYCLOPHOSPHAMIDE [Concomitant]
  50. ACYCLOVIR [Concomitant]
  51. VITAMIN E [Concomitant]
  52. PREMARIN [Concomitant]
  53. PENLAC [Concomitant]
  54. LEVAQUIN [Concomitant]
  55. DETROL                                  /USA/ [Concomitant]
  56. AMLODIPINE BESYLATE [Concomitant]
  57. ALLEGRA [Concomitant]
  58. DECADRON [Concomitant]
  59. CYTOXAN [Concomitant]
  60. FOLATE SODIUM [Concomitant]
  61. MULTI-VITAMIN [Concomitant]

REACTIONS (62)
  - LOOSE TOOTH [None]
  - VISUAL IMPAIRMENT [None]
  - SENSITIVITY OF TEETH [None]
  - LIP SWELLING [None]
  - INFECTION [None]
  - HAEMATOMA [None]
  - FOOT DEFORMITY [None]
  - NASAL OBSTRUCTION [None]
  - VENTRICULAR HYPERTROPHY [None]
  - OSTEOPOROSIS [None]
  - POSTERIOR CAPSULE OPACIFICATION [None]
  - PAROSMIA [None]
  - COGNITIVE DISORDER [None]
  - SPINAL OSTEOARTHRITIS [None]
  - SPINAL DISORDER [None]
  - OSTEOLYSIS [None]
  - SUBCUTANEOUS NODULE [None]
  - IRON DEFICIENCY [None]
  - FALL [None]
  - MOUTH HAEMORRHAGE [None]
  - DYSPEPSIA [None]
  - OSTEONECROSIS OF JAW [None]
  - ANXIETY [None]
  - SKIN PAPILLOMA [None]
  - DYSGEUSIA [None]
  - MULTIPLE MYELOMA [None]
  - CEREBRAL ATROPHY [None]
  - UTERINE MASS [None]
  - EXOSTOSIS [None]
  - IMPAIRED HEALING [None]
  - VITREOUS FLOATERS [None]
  - OSTEORADIONECROSIS [None]
  - VISUAL ACUITY REDUCED [None]
  - SECONDARY SEQUESTRUM [None]
  - HYPERKERATOSIS [None]
  - BRONCHITIS [None]
  - TOOTH DISORDER [None]
  - OSTEOMYELITIS [None]
  - ORAL CAVITY FISTULA [None]
  - RHINITIS ALLERGIC [None]
  - ENDOMETRIAL HYPERPLASIA [None]
  - ROAD TRAFFIC ACCIDENT [None]
  - MENISCUS LESION [None]
  - NERVOUS SYSTEM DISORDER [None]
  - BONE DENSITY INCREASED [None]
  - NOCTURIA [None]
  - CONTUSION [None]
  - ANAEMIA [None]
  - OSTEOPENIA [None]
  - PAIN [None]
  - DECREASED INTEREST [None]
  - SINUSITIS [None]
  - HAEMATURIA [None]
  - ONYCHOMYCOSIS [None]
  - JOINT INJURY [None]
  - HEPATIC CYST [None]
  - FEMUR FRACTURE [None]
  - GENERAL PHYSICAL HEALTH DETERIORATION [None]
  - PHOTOPSIA [None]
  - BONE DISORDER [None]
  - HYPERTONIC BLADDER [None]
  - COLONIC POLYP [None]
